FAERS Safety Report 6640097-1 (Version None)
Quarter: 2010Q1

REPORT INFORMATION
  Report Type: 
  Country: None (occurrence: None)
  Receive Date: 20100318
  Receipt Date: 20100311
  Transmission Date: 20100710
  Serious: Yes (Hospitalization)
  Sender: FDA-Public Use
  Company Number: FR-ROCHE-676263

PATIENT
  Sex: Female
  Weight: 51 kg

DRUGS (4)
  1. BONIVA [Suspect]
     Indication: OSTEOPOROSIS
     Route: 048
     Dates: start: 20070703, end: 20091008
  2. COTAREG [Concomitant]
     Dosage: DOSE REPORTED: 160 MG/ 25 MG
     Route: 048
     Dates: start: 20051215, end: 20091008
  3. NEBILOX [Concomitant]
     Route: 048
     Dates: start: 20060207
  4. DAFALGAN [Concomitant]
     Dosage: DOSE REPORTED: TWO DOSES; DRUG NAME REPORTED: DAFALGAN 500
     Route: 048

REACTIONS (1)
  - PEMPHIGOID [None]
